FAERS Safety Report 9888675 (Version 3)
Quarter: 2014Q1

REPORT INFORMATION
  Report Type: Spontaneous
  Country: US (occurrence: US)
  Receive Date: 20140211
  Receipt Date: 20140228
  Transmission Date: 20141002
  Serious: Yes (Hospitalization)
  Sender: FDA-Public Use
  Company Number: US-ACTELION-A-US2013-84959

PATIENT
  Age: 66 Year
  Sex: Female

DRUGS (4)
  1. TRACLEER [Suspect]
     Indication: PULMONARY ARTERIAL HYPERTENSION
     Dosage: UNK
     Route: 048
     Dates: start: 2004
  2. SILDENAFIL [Concomitant]
  3. TYVASO [Concomitant]
  4. COUMADIN [Concomitant]

REACTIONS (7)
  - Hernia [Recovered/Resolved]
  - Abdominal pain [Recovered/Resolved]
  - Hernia repair [Recovered/Resolved]
  - Explorative laparotomy [Recovered/Resolved]
  - Intestinal adhesion lysis [Recovered/Resolved]
  - Vomiting [Recovered/Resolved]
  - Diarrhoea [Recovered/Resolved]
